FAERS Safety Report 5203751-4 (Version None)
Quarter: 2007Q1

REPORT INFORMATION
  Report Type: 
  Country: None (occurrence: None)
  Receive Date: 20070108
  Receipt Date: 20070108
  Transmission Date: 20070707
  Serious: Yes (Other)
  Sender: FDA-Public Use
  Company Number: None

PATIENT
  Age: 39 Year
  Sex: Female
  Weight: 53.5244 kg

DRUGS (1)
  1. TAMIFLU [Suspect]
     Indication: INFLUENZA
     Dosage: 1 - 75 MG CAPSULE TWICE PER DAY PO
     Route: 048
     Dates: start: 20061205, end: 20061206

REACTIONS (5)
  - DRUG HYPERSENSITIVITY [None]
  - DRUG INTOLERANCE [None]
  - OEDEMA PERIPHERAL [None]
  - SWELLING FACE [None]
  - URTICARIA GENERALISED [None]
